FAERS Safety Report 7821061-3 (Version None)
Quarter: 2011Q4

REPORT INFORMATION
  Report Type: 
  Country: None (occurrence: None)
  Receive Date: 20111018
  Receipt Date: 20111014
  Transmission Date: 20120403
  Serious: No
  Sender: FDA-Public Use
  Company Number: US-PFIZER INC-2011246557

PATIENT
  Sex: Female
  Weight: 72.6 kg

DRUGS (5)
  1. KLONOPIN [Suspect]
     Indication: BIPOLAR DISORDER
     Dosage: SPLITTING 1 MG TABLET INTO SIX PIECES AND TAKING TWO OR THREE PIECES AS NEEDED
     Dates: start: 20100101
  2. PROZAC [Suspect]
     Indication: BIPOLAR DISORDER
     Dosage: 40 MG, 1X/DAY
     Dates: start: 20110101
  3. LITHIUM CITRATE [Suspect]
     Dosage: ONE 300 MG TABLET IN THE MORNING AND TWO 300 MG TABLETS AT NIGHT
     Dates: start: 20110101
  4. LYBREL [Suspect]
     Indication: DYSMENORRHOEA
     Dosage: UNK,DAILY
  5. LITHIUM CITRATE [Suspect]
     Indication: BIPOLAR DISORDER
     Dosage: 300 MG, 2X/DAY
     Dates: start: 20110101, end: 20110101

REACTIONS (1)
  - METRORRHAGIA [None]
